FAERS Safety Report 24969712 (Version 1)
Quarter: 2025Q1

REPORT INFORMATION
  Report Type: Spontaneous
  Country: TR (occurrence: TR)
  Receive Date: 20250214
  Receipt Date: 20250214
  Transmission Date: 20250409
  Serious: Yes (Life-Threatening, Hospitalization)
  Sender: ACCORD
  Company Number: TR-MLMSERVICE-20250129-PI375938-00117-1

PATIENT
  Age: 21 Year
  Sex: Male

DRUGS (11)
  1. AZACITIDINE [Suspect]
     Active Substance: AZACITIDINE
     Indication: Precursor T-lymphoblastic leukaemia acute
     Dosage: 75 MG/KG D1-7 FOR 28 DAYS; RECEIVED 2 CYCLES
  2. DARATUMUMAB [Suspect]
     Active Substance: DARATUMUMAB
     Indication: Precursor T-lymphoblastic leukaemia acute
     Dosage: RECEIVED 2 CYCLES
  3. DEXAMETHASONE [Suspect]
     Active Substance: DEXAMETHASONE
     Indication: Precursor T-lymphoblastic leukaemia acute
     Dosage: RECEIVED 2 CYCLES
  4. VENETOCLAX [Suspect]
     Active Substance: VENETOCLAX
     Indication: Precursor T-lymphoblastic leukaemia acute
     Dosage: ON D1; RECEIVED 2 CYCLES
  5. MICAFUNGIN SODIUM [Concomitant]
     Active Substance: MICAFUNGIN SODIUM
     Indication: Antifungal prophylaxis
  6. VENETOCLAX [Suspect]
     Active Substance: VENETOCLAX
     Indication: Disease progression
     Dosage: ON D1; RECEIVED 2 CYCLES
  7. AZACITIDINE [Suspect]
     Active Substance: AZACITIDINE
     Indication: Disease progression
     Dosage: 75 MG/KG D1-7 FOR 28 DAYS; RECEIVED 2 CYCLES
  8. DEXAMETHASONE [Suspect]
     Active Substance: DEXAMETHASONE
     Indication: Disease progression
     Dosage: RECEIVED 2 CYCLES
  9. DARATUMUMAB [Suspect]
     Active Substance: DARATUMUMAB
     Indication: Disease progression
     Dosage: RECEIVED 2 CYCLES
  10. VENETOCLAX [Suspect]
     Active Substance: VENETOCLAX
     Indication: Precursor T-lymphoblastic leukaemia acute
     Dosage: ON D2; RECEIVED 2 CYCLES
  11. VENETOCLAX [Suspect]
     Active Substance: VENETOCLAX
     Indication: Precursor T-lymphoblastic leukaemia acute
     Dosage: FROM DAY3-28; RECEIVED 2 CYCLES

REACTIONS (5)
  - Neutropenia [Unknown]
  - Febrile neutropenia [Unknown]
  - Bronchopulmonary aspergillosis [Unknown]
  - Haemophilus infection [Unknown]
  - Bacterial sepsis [Unknown]
